FAERS Safety Report 25510137 (Version 1)
Quarter: 2025Q3

REPORT INFORMATION
  Report Type: Spontaneous
  Country: US (occurrence: US)
  Receive Date: 20250703
  Receipt Date: 20250703
  Transmission Date: 20251020
  Serious: No
  Sender: RADIUS PHARM
  Company Number: US-RADIUS HEALTH INC.-2024US002694

PATIENT
  Sex: Female

DRUGS (2)
  1. TYMLOS [Suspect]
     Active Substance: ABALOPARATIDE
     Indication: Senile osteoporosis
     Route: 058
     Dates: start: 20240825, end: 20240825
  2. TYMLOS [Suspect]
     Active Substance: ABALOPARATIDE
     Route: 058
     Dates: start: 20240419, end: 20240801

REACTIONS (22)
  - Fatigue [Unknown]
  - Headache [Unknown]
  - Urinary incontinence [Unknown]
  - Heart rate increased [Unknown]
  - Spinal pain [Unknown]
  - Blood pressure increased [Unknown]
  - Nocturia [Unknown]
  - Eructation [Unknown]
  - Blood calcium increased [Unknown]
  - Constipation [Recovered/Resolved]
  - Diarrhoea [Unknown]
  - Abdominal distension [Unknown]
  - Nasopharyngitis [Unknown]
  - Nausea [Unknown]
  - COVID-19 [Recovered/Resolved]
  - Pollakiuria [Unknown]
  - Dizziness [Unknown]
  - Intentional dose omission [Unknown]
  - Feeling abnormal [Unknown]
  - Palpitations [Unknown]
  - Hypotension [Unknown]
  - Insomnia [Unknown]

NARRATIVE: CASE EVENT DATE: 20240101
